FAERS Safety Report 4854774-6 (Version None)
Quarter: 2005Q4

REPORT INFORMATION
  Report Type: 
  Country: None (occurrence: None)
  Receive Date: 20051214
  Receipt Date: 20051214
  Transmission Date: 20060501
  Serious: Yes (Life-Threatening, Hospitalization)
  Sender: FDA-Public Use
  Company Number: None

PATIENT
  Sex: Male
  Weight: 78.2 kg

DRUGS (4)
  1. ENBREL [Suspect]
     Indication: RHEUMATOID ARTHRITIS
     Dosage: 25 MILLIGRAMS  TWICE WEEKLY  SQ
     Route: 058
     Dates: start: 20030402, end: 20050823
  2. PIROXICAM [Concomitant]
  3. IBUPROFEN [Concomitant]
  4. VITAMIN CAP [Concomitant]

REACTIONS (2)
  - LUNG DISORDER [None]
  - LYMPHOHISTIOCYTOSIS [None]
